FAERS Safety Report 9413739 (Version 1)
Quarter: 2013Q3

REPORT INFORMATION
  Report Type: Spontaneous
  Country: AT (occurrence: AT)
  Receive Date: 20130722
  Receipt Date: 20130722
  Transmission Date: 20140515
  Serious: Yes (Other)
  Sender: FDA-Public Use
  Company Number: AT-ROXANE LABORATORIES, INC.-2013-RO-01174RO

PATIENT
  Age: 41 Year
  Sex: Female

DRUGS (3)
  1. OXCARBAZEPINE [Suspect]
     Dosage: 900 MG
  2. QUETIAPINE FUMARATE [Suspect]
     Dosage: 25 MG
  3. TRAZODONE [Suspect]
     Dosage: 150 MG

REACTIONS (1)
  - Restless legs syndrome [Recovered/Resolved]
